FAERS Safety Report 7483745-9 (Version None)
Quarter: 2011Q2

REPORT INFORMATION
  Report Type: 
  Country: None (occurrence: None)
  Receive Date: 20110517
  Receipt Date: 20110503
  Transmission Date: 20111010
  Serious: Yes (Hospitalization)
  Sender: FDA-Public Use
  Company Number: US-ELI_LILLY_AND_COMPANY-US201105001670

PATIENT
  Sex: Female

DRUGS (13)
  1. VITAMIN B-12 [Concomitant]
     Dosage: UNK, 2/M
     Route: 065
  2. PROZAC [Concomitant]
     Dosage: 20 MG, UNKNOWN
     Route: 065
  3. PREMARIN [Concomitant]
     Dosage: 0.3 MG, UNKNOWN
     Route: 065
  4. MOBIC [Concomitant]
     Dosage: 15 MG, UNKNOWN
     Route: 065
  5. METOPROLOL SUCCINATE [Concomitant]
     Dosage: 25 MG, UNKNOWN
     Route: 065
  6. IMODIUM [Concomitant]
     Dosage: 2 MG, UNKNOWN
     Route: 065
  7. BENTYL [Concomitant]
     Dosage: 20 MG, UNKNOWN
     Route: 065
  8. METAMUCIL-2 [Concomitant]
     Dosage: UNK
     Route: 065
  9. VICODIN [Concomitant]
     Dosage: UNK, PRN
     Route: 065
  10. KLONOPIN [Concomitant]
     Dosage: 0.5 MG, UNKNOWN
     Route: 065
  11. SKELAXIN [Concomitant]
     Dosage: 800 MG, UNKNOWN
     Route: 065
  12. FORTEO [Suspect]
     Indication: OSTEOPOROSIS
     Dosage: 20 UG, QD
     Route: 065
     Dates: start: 20101001
  13. NEXIUM [Concomitant]
     Dosage: UNK UNK, UNKNOWN
     Route: 065

REACTIONS (7)
  - CYSTITIS [None]
  - PYREXIA [None]
  - HYPOTENSION [None]
  - DIZZINESS [None]
  - ABDOMINAL PAIN LOWER [None]
  - DEHYDRATION [None]
  - URINARY INCONTINENCE [None]
